FAERS Safety Report 14609383 (Version 1)
Quarter: 2018Q1

REPORT INFORMATION
  Report Type: Spontaneous
  Country: US (occurrence: US)
  Receive Date: 20180306
  Receipt Date: 20180306
  Transmission Date: 20180509
  Serious: Yes (Hospitalization)
  Sender: FDA-Public Use
  Company Number: None

PATIENT
  Age: 62 Year
  Sex: Female

DRUGS (25)
  1. ZIAC [Concomitant]
     Active Substance: BISOPROLOL FUMARATE\HYDROCHLOROTHIAZIDE
  2. NEXIUM [Concomitant]
     Active Substance: ESOMEPRAZOLE MAGNESIUM
  3. OXYCODONE [Concomitant]
     Active Substance: OXYCODONE
  4. COSENTYX [Suspect]
     Active Substance: SECUKINUMAB
     Indication: PSORIASIS
     Route: 058
     Dates: start: 20161123
  5. SULINDAC. [Concomitant]
     Active Substance: SULINDAC
  6. ENBREL SRCLK [Concomitant]
  7. FENOFIBRATE. [Concomitant]
     Active Substance: FENOFIBRATE
  8. ESOMEPRA MAG [Concomitant]
  9. CEPHALEXIN. [Concomitant]
     Active Substance: CEPHALEXIN
  10. CALCIUM + D [Concomitant]
     Active Substance: CALCIUM\VITAMIN D
  11. CALCIUM + D3 [Concomitant]
     Active Substance: CALCIUM\CHOLECALCIFEROL
  12. ALLOPURINOL. [Concomitant]
     Active Substance: ALLOPURINOL
  13. AMOX/K CLAV [Concomitant]
     Active Substance: AMOXICILLIN\CLAVULANATE POTASSIUM
  14. CLIMARA [Concomitant]
     Active Substance: ESTRADIOL
  15. CYCLOBENZAPR [Concomitant]
     Active Substance: CYCLOBENZAPRINE
  16. ALEVE [Concomitant]
     Active Substance: NAPROXEN SODIUM
  17. FLUTICASONE. [Concomitant]
     Active Substance: FLUTICASONE
  18. DOVONEX [Concomitant]
     Active Substance: CALCIPOTRIENE
  19. DICLOFENAC [Concomitant]
     Active Substance: DICLOFENAC
  20. BISOPRL/HCTZ [Concomitant]
  21. CARISOPRODOL. [Concomitant]
     Active Substance: CARISOPRODOL
  22. CLOBETASOL [Concomitant]
     Active Substance: CLOBETASOL
  23. PREMARIN [Concomitant]
     Active Substance: ESTROGENS, CONJUGATED
  24. GABAPENTIN. [Concomitant]
     Active Substance: GABAPENTIN
  25. METFORMIN [Concomitant]
     Active Substance: METFORMIN HYDROCHLORIDE

REACTIONS (1)
  - Drug dose omission [None]

NARRATIVE: CASE EVENT DATE: 20180213
